FAERS Safety Report 5218560-X (Version None)
Quarter: 2007Q1

REPORT INFORMATION
  Report Type: 
  Country: None (occurrence: None)
  Receive Date: 20070122
  Receipt Date: 20070112
  Transmission Date: 20070707
  Serious: Yes (Other)
  Sender: FDA-Public Use
  Company Number: 2006SP008904

PATIENT
  Age: 66 Year
  Sex: Male
  Weight: 47 kg

DRUGS (18)
  1. TEMOZOLOMIDE (S-P) (TEMOZOLOMIDE) [Suspect]
     Indication: GLIOBLASTOMA MULTIFORME
     Dosage: SEE IMAGE
     Route: 048
     Dates: start: 20060529, end: 20060707
  2. TEMOZOLOMIDE (S-P) (TEMOZOLOMIDE) [Suspect]
     Indication: GLIOBLASTOMA MULTIFORME
     Dosage: SEE IMAGE
     Route: 048
     Dates: start: 20060803, end: 20060807
  3. TEMOZOLOMIDE (S-P) (TEMOZOLOMIDE) [Suspect]
     Indication: GLIOBLASTOMA MULTIFORME
     Dosage: SEE IMAGE
     Route: 048
     Dates: start: 20060831, end: 20060904
  4. TEMOZOLOMIDE (S-P) (TEMOZOLOMIDE) [Suspect]
     Indication: GLIOBLASTOMA MULTIFORME
     Dosage: SEE IMAGE
     Route: 048
     Dates: start: 20060928, end: 20061002
  5. TEMOZOLOMIDE (S-P) (TEMOZOLOMIDE) [Suspect]
     Indication: GLIOBLASTOMA MULTIFORME
     Dosage: SEE IMAGE
     Route: 048
     Dates: start: 20061026, end: 20061030
  6. TEMOZOLOMIDE (S-P) (TEMOZOLOMIDE) [Suspect]
     Indication: GLIOBLASTOMA MULTIFORME
     Dosage: SEE IMAGE
     Route: 048
     Dates: start: 20061123, end: 20061127
  7. TEMOZOLOMIDE (S-P) (TEMOZOLOMIDE) [Suspect]
     Indication: GLIOBLASTOMA MULTIFORME
     Dosage: SEE IMAGE
     Route: 048
     Dates: start: 20061221, end: 20061225
  8. RADIATION THERAPY (CON.) [Concomitant]
  9. NASEA OD (CON.) [Concomitant]
  10. GLIMICRON (CON.) [Concomitant]
  11. EXCEGRAN (CON.) [Concomitant]
  12. MYSLEE (CON.) [Concomitant]
  13. PREDONINE (CON.) [Concomitant]
  14. GASTER (CON.) [Concomitant]
  15. BAKTAR (CON.) [Concomitant]
  16. NEW LECICARBON (CON.) [Concomitant]
  17. LAXOBERON (CON.) [Concomitant]
  18. SELTOUCH (CON.) [Concomitant]

REACTIONS (4)
  - GASTRIC CANCER [None]
  - GASTRIC STENOSIS [None]
  - GASTRIC ULCER [None]
  - REFLUX OESOPHAGITIS [None]
